FAERS Safety Report 11078339 (Version 1)
Quarter: 2015Q2

REPORT INFORMATION
  Report Type: Spontaneous
  Country: CH (occurrence: CH)
  Receive Date: 20150430
  Receipt Date: 20150430
  Transmission Date: 20150821
  Serious: Yes (Death, Life-Threatening, Other)
  Sender: FDA-Public Use
  Company Number: CH-ASTRAZENECA-2015SE38066

PATIENT
  Age: 26752 Day
  Sex: Male
  Weight: 97 kg

DRUGS (11)
  1. LIQUEMINE [Interacting]
     Active Substance: HEPARIN SODIUM
     Indication: ACUTE MYOCARDIAL INFARCTION
     Route: 013
     Dates: start: 20150409, end: 20150409
  2. ISOSORBIDE [Concomitant]
     Active Substance: ISOSORBIDE
     Indication: ACUTE MYOCARDIAL INFARCTION
     Route: 002
     Dates: start: 20150409, end: 20150409
  3. VISIPAQUE [Concomitant]
     Active Substance: IODIXANOL
     Indication: ACUTE MYOCARDIAL INFARCTION
     Route: 013
     Dates: start: 20150409, end: 20150409
  4. RAPIDOCAIN [Concomitant]
     Active Substance: LIDOCAINE HYDROCHLORIDE
     Indication: ACUTE MYOCARDIAL INFARCTION
     Route: 058
     Dates: start: 20150409, end: 20150409
  5. TEMESTA [Concomitant]
     Active Substance: LORAZEPAM
     Indication: CHEST PAIN
     Route: 048
     Dates: start: 20150409, end: 20150409
  6. IRBESARTAN. [Concomitant]
     Active Substance: IRBESARTAN
  7. BRILIQUE [Suspect]
     Active Substance: TICAGRELOR
     Indication: ACUTE MYOCARDIAL INFARCTION
     Route: 048
     Dates: start: 20150409, end: 20150409
  8. ISOSORBIDE [Concomitant]
     Active Substance: ISOSORBIDE
     Indication: ACUTE MYOCARDIAL INFARCTION
     Route: 002
     Dates: start: 20150409, end: 20150409
  9. LIQUEMINE [Interacting]
     Active Substance: HEPARIN SODIUM
     Indication: ACUTE MYOCARDIAL INFARCTION
     Route: 040
     Dates: start: 20150409, end: 20150409
  10. ASPEGIC [Interacting]
     Active Substance: ASPIRIN DL-LYSINE
     Indication: ACUTE MYOCARDIAL INFARCTION
     Route: 041
     Dates: start: 20150409, end: 20150409
  11. VERAPAMIL [Interacting]
     Active Substance: VERAPAMIL HYDROCHLORIDE
     Indication: ACUTE MYOCARDIAL INFARCTION
     Route: 013
     Dates: start: 20150409, end: 20150409

REACTIONS (14)
  - Hydrocephalus [Fatal]
  - Cerebral haemorrhage [Fatal]
  - Apnoea [Unknown]
  - Activated partial thromboplastin time prolonged [Unknown]
  - Brain herniation [Unknown]
  - Thalamus haemorrhage [Fatal]
  - Intraventricular haemorrhage [Fatal]
  - Drug interaction [Fatal]
  - Basal ganglia haemorrhage [Fatal]
  - Aphasia [Fatal]
  - Paralysis [Fatal]
  - Pupils unequal [Unknown]
  - Coma [Fatal]
  - Facial paresis [Unknown]

NARRATIVE: CASE EVENT DATE: 20150409
